FAERS Safety Report 21128825 (Version 3)
Quarter: 2022Q3

REPORT INFORMATION
  Report Type: Spontaneous
  Country: US (occurrence: US)
  Receive Date: 20220725
  Receipt Date: 20220819
  Transmission Date: 20221026
  Serious: Yes (Other)
  Sender: FDA-Public Use
  Company Number: US-PFIZER INC-PV202200028348

PATIENT
  Age: 22 Year
  Sex: Male

DRUGS (3)
  1. XELJANZ XR [Interacting]
     Active Substance: TOFACITINIB CITRATE
     Indication: Psoriatic arthropathy
     Dosage: 11 MG
  2. XELJANZ XR [Interacting]
     Active Substance: TOFACITINIB CITRATE
     Indication: Rheumatoid arthritis
  3. PREDNISONE [Interacting]
     Active Substance: PREDNISONE
     Dosage: UNK

REACTIONS (6)
  - Immunosuppression [Unknown]
  - Drug interaction [Unknown]
  - Therapeutic product effect incomplete [Unknown]
  - Movement disorder [Unknown]
  - Sensory loss [Unknown]
  - Arthritis [Not Recovered/Not Resolved]
